FAERS Safety Report 9255553 (Version 1)
Quarter: 2013Q1

REPORT INFORMATION
  Report Type: Spontaneous
  Country: US (occurrence: None)
  Receive Date: 20121203
  Receipt Date: 20121203
  Transmission Date: 20140127
  Serious: Yes (Other)
  Sender: FDA-Public Use
  Company Number: 1207USA012091

PATIENT
  Age: 48 Year
  Sex: Male

DRUGS (1)
  1. NASONEX [Suspect]
     Route: 045

REACTIONS (1)
  - Cataract [None]
